FAERS Safety Report 12760438 (Version 1)
Quarter: 2016Q3

REPORT INFORMATION
  Report Type: Spontaneous
  Country: US (occurrence: US)
  Receive Date: 20160919
  Receipt Date: 20160919
  Transmission Date: 20161109
  Serious: No
  Sender: FDA-Public Use
  Company Number: US-ELI_LILLY_AND_COMPANY-US201609002662

PATIENT
  Sex: Female

DRUGS (3)
  1. LANTUS [Concomitant]
     Active Substance: INSULIN GLARGINE
     Dosage: 45 U, EACH EVENING, AT BEDTIME
  2. VICTOZA [Concomitant]
     Active Substance: LIRAGLUTIDE
     Dosage: 1.8 MG, QD
  3. HUMALOG [Suspect]
     Active Substance: INSULIN LISPRO
     Indication: TYPE 2 DIABETES MELLITUS
     Dosage: 8-10 UNITS WITH MEALS
     Route: 065
     Dates: start: 201503

REACTIONS (5)
  - Arthritis [Not Recovered/Not Resolved]
  - Drug dose omission [Unknown]
  - Neuropathy peripheral [Not Recovered/Not Resolved]
  - Malaise [Unknown]
  - Blood glucose decreased [Unknown]

NARRATIVE: CASE EVENT DATE: 2015
